FAERS Safety Report 16478972 (Version 1)
Quarter: 2019Q2

REPORT INFORMATION
  Report Type: Report from Study
  Country: US (occurrence: US)
  Receive Date: 20190626
  Receipt Date: 20190626
  Transmission Date: 20190711
  Serious: Yes (Hospitalization, Other)
  Sender: FDA-Public Use
  Company Number: US-MYLANLABS-2019M1057880

PATIENT
  Age: 72 Year
  Sex: Male
  Weight: 110 kg

DRUGS (33)
  1. MESNA. [Suspect]
     Active Substance: MESNA
     Indication: PRODUCT USED FOR UNKNOWN INDICATION
     Dosage: 300 MILLIGRAM/SQ. METER, DAILY OVER 24 HOURS FOR 3 DAYS ON DAYS 1-3
     Route: 042
  2. FULPHILA [Suspect]
     Active Substance: PEGFILGRASTIM-JMDB
     Indication: PRODUCT USED FOR UNKNOWN INDICATION
     Dosage: 6 MILLIGRAM (6 MG SUBQ (OR FILGRASTIM 5-10 MCG/KG DAILY) ON DAY4)
     Route: 058
  3. DEXAMETHASONE. [Suspect]
     Active Substance: DEXAMETHASONE
     Indication: PRODUCT USED FOR UNKNOWN INDICATION
     Dosage: 20 MILLIGRAM, QD IV DAILY FOR 4 DAYS ON DAYS 1-4 AND DAYS 11-14 (APPROXIMATE)
     Route: 042
  4. NOVOLIN [Concomitant]
     Active Substance: INSULIN HUMAN
     Dosage: UNK
  5. REQUIP [Concomitant]
     Active Substance: ROPINIROLE HYDROCHLORIDE
     Dosage: UNK
  6. RITUXIMAB. [Suspect]
     Active Substance: RITUXIMAB
     Dosage: 375 MILLIGRAM/SQ. METER, IV ON DAY 2 AND 8 OF CYCLES 2 AND 4, INTRAVENOUS
     Route: 042
  7. CYCLOPHOSPHAMIDE. [Suspect]
     Active Substance: CYCLOPHOSPHAMIDE
     Indication: PRODUCT USED FOR UNKNOWN INDICATION
     Dosage: 150 MILLIGRAM/SQ. METER, ON DAYS 1 AND 3 OF INDUCTION/CONSOLIDATION CYCLES
     Route: 042
     Dates: start: 20160326, end: 20160918
  8. BLINATUMOMAB [Suspect]
     Active Substance: BLINATUMOMAB
     Dosage: 28UG/DAY CONTINUOUS INFUSION DAYS 1-29 (CYCLES 6, 11 AND 12)
     Route: 042
  9. ACTIGALL [Concomitant]
     Active Substance: URSODIOL
     Dosage: UNK
  10. MERCAPTOPURINE. [Suspect]
     Active Substance: MERCAPTOPURINE
     Dosage: 50 MILLIGRAM, BID
     Route: 048
  11. VINCRISTINE SULFATE. [Suspect]
     Active Substance: VINCRISTINE SULFATE
     Indication: PRODUCT USED FOR UNKNOWN INDICATION
     Dosage: 2 MILLIGRAM IV DAY 1 AND DAY 8 (APPROXIMATE) (IV MONTHLY FOR 1 YEAR)
     Route: 042
  12. BLINATUMOMAB [Suspect]
     Active Substance: BLINATUMOMAB
     Dosage: 28UG/DAY CONTINUOUS INFUSION DAYS 1-4(CYCLE 5 ONLY)
     Route: 042
  13. METHOTREXATE SODIUM. [Suspect]
     Active Substance: METHOTREXATE SODIUM
     Dosage: 200 MILLIGRAM/SQ. METER CONTINUOUS INFUSION OVER 22 HOURS ON DAY 1
  14. INOTUZUMAB OZOGAMICIN [Suspect]
     Active Substance: INOTUZUMAB OZOGAMICIN
     Indication: ACUTE LYMPHOCYTIC LEUKAEMIA
     Dosage: 1 MILLIGRAM/SQ. METER DAY 2 AND DAY 9 OF SPECIFIED CYCLES ((CMC-544) IV OVER 1 HOUR ON DAYS 2 AND 8
     Route: 042
     Dates: start: 20160328, end: 20160612
  15. RESTORIL [Concomitant]
     Active Substance: TEMAZEPAM
     Dosage: UNK
  16. PREDNISONE. [Suspect]
     Active Substance: PREDNISONE
     Indication: PRODUCT USED FOR UNKNOWN INDICATION
     Dosage: 50 MILLIGRAM, DAILY X 5 EVERY MONTH FOR 1 YEAR
     Route: 048
  17. METHOTREXATE. [Suspect]
     Active Substance: METHOTREXATE
     Dosage: 10 MILLIGRAM/SQ. METER, QW
     Route: 048
  18. RITUXIMAB. [Suspect]
     Active Substance: RITUXIMAB
     Indication: ACUTE LYMPHOCYTIC LEUKAEMIA
     Dosage: 375 MILLIGRAM/SQ. METER, DAYS 1 AND 8 OF SPECIFIED CYCLES
     Route: 042
     Dates: start: 20160327, end: 20160615
  19. NEURONTIN [Concomitant]
     Active Substance: GABAPENTIN
     Dosage: UNK
  20. GLUCOTROL [Concomitant]
     Active Substance: GLIPIZIDE
     Dosage: UNK
  21. GLUCOPHAGE [Concomitant]
     Active Substance: METFORMIN HYDROCHLORIDE
     Dosage: UNK
  22. METHOTREXATE. [Suspect]
     Active Substance: METHOTREXATE
     Indication: ACUTE LYMPHOCYTIC LEUKAEMIA
     Dosage: 17.5 MILLIGRAM, QW
     Route: 048
     Dates: start: 20161201, end: 20190316
  23. MERCAPTOPURINE. [Suspect]
     Active Substance: MERCAPTOPURINE
     Indication: ACUTE LYMPHOCYTIC LEUKAEMIA
     Dosage: 25 MG/50 MG ALTERNATING, ONCE DAILY WITH HIGHER DOSE ON MONDAY, WEDNESDAY, FRIDAY (MWF)
     Route: 048
     Dates: start: 20161201, end: 20190316
  24. CYTARABINE. [Suspect]
     Active Substance: CYTARABINE
     Indication: PRODUCT USED FOR UNKNOWN INDICATION
     Dosage: 0.5 MILLIGRAM/SQ. METER, IV OVER 3 HOURS TWICE A DAY X 4 DOSES ON DAYS 2 AND 3
     Route: 042
  25. RITUXIMAB. [Suspect]
     Active Substance: RITUXIMAB
     Dosage: 375 MILLIGRAM/SQ. METER, IV ONY 2 AND DAY 8 OF CYCLES 1 AND 3, INTRAVENOUS
     Route: 042
  26. PRILOSEC [Concomitant]
     Active Substance: OMEPRAZOLE MAGNESIUM
     Dosage: UNK
  27. ULTRAM [Concomitant]
     Active Substance: TRAMADOL HYDROCHLORIDE
     Dosage: UNK
  28. VALTREX [Concomitant]
     Active Substance: VALACYCLOVIR HYDROCHLORIDE
     Dosage: UNK
  29. METHOTREXATE SODIUM. [Suspect]
     Active Substance: METHOTREXATE SODIUM
     Indication: ACUTE LYMPHOCYTIC LEUKAEMIA
     Dosage: 50 MILLIGRAM/SQ. METER IV OVER 2HRS ON DAY 1 THEN
     Route: 042
  30. BLINATUMOMAB [Suspect]
     Active Substance: BLINATUMOMAB
     Indication: PRODUCT USED FOR UNKNOWN INDICATION
     Dosage: 9UG/DAY CONTINUOUS INFUSION DAYS 1-4 (CYCLE 5 ONLY)
  31. HUMALOG [Concomitant]
     Active Substance: INSULIN LISPRO
     Dosage: UNK
  32. PRINZIDE [Concomitant]
     Active Substance: HYDROCHLOROTHIAZIDE\LISINOPRIL
     Dosage: UNK
  33. CYCLOPHOSPHAMIDE. [Suspect]
     Active Substance: CYCLOPHOSPHAMIDE
     Dosage: 150 MILLIGRAM/SQ. METER, IV (OVER 3 HOURS TWICE A DAY ON DAYS 1-3)
     Route: 042

REACTIONS (2)
  - Myelodysplastic syndrome [Not Recovered/Not Resolved]
  - Second primary malignancy [Unknown]

NARRATIVE: CASE EVENT DATE: 20190425
